FAERS Safety Report 18201618 (Version 1)
Quarter: 2020Q3

REPORT INFORMATION
  Report Type: Spontaneous
  Country: US (occurrence: US)
  Receive Date: 20200827
  Receipt Date: 20200827
  Transmission Date: 20201103
  Serious: Yes (Other)
  Sender: FDA-Public Use
  Company Number: US-009507513-2002USA001515

PATIENT
  Sex: Male

DRUGS (4)
  1. ZOSTAVAX [Suspect]
     Active Substance: VARICELLA-ZOSTER VIRUS STRAIN OKA/MERCK LIVE ANTIGEN
     Indication: PROPHYLAXIS
     Dosage: 1 DOSAGE FORM
     Route: 058
     Dates: start: 20111118
  2. STERILE DILUENT (WATER) [Suspect]
     Active Substance: WATER
     Dosage: IN LEFT ARM
     Route: 058
     Dates: start: 20111118
  3. PRINIVIL [Concomitant]
     Active Substance: LISINOPRIL
     Indication: HYPERTENSION
     Dosage: 40 MILLIGRAM
     Dates: start: 2010
  4. INSULIN [Concomitant]
     Active Substance: INSULIN NOS
     Indication: DIABETES MELLITUS
     Dosage: 40 UNITS
     Dates: start: 1980

REACTIONS (10)
  - Post herpetic neuralgia [Unknown]
  - Herpes zoster [Recovered/Resolved]
  - Pulmonary granuloma [Unknown]
  - Back pain [Unknown]
  - Asthma [Unknown]
  - Ill-defined disorder [Unknown]
  - Erectile dysfunction [Unknown]
  - Chronic kidney disease [Unknown]
  - Post herpetic neuralgia [Unknown]
  - Hyperlipidaemia [Unknown]

NARRATIVE: CASE EVENT DATE: 20120925
